FAERS Safety Report 10578456 (Version 1)
Quarter: 2014Q4

REPORT INFORMATION
  Report Type: Spontaneous
  Country: US (occurrence: None)
  Receive Date: 20141107
  Receipt Date: 20141107
  Transmission Date: 20150529
  Serious: Yes (Other)
  Sender: FDA-Public Use
  Company Number: 1300733

PATIENT
  Sex: Female

DRUGS (7)
  1. PREDNISONE (PREDNISONE) [Concomitant]
     Active Substance: PREDNISONE
  2. NEXIUM [Concomitant]
     Active Substance: ESOMEPRAZOLE MAGNESIUM
  3. NAPROSYN [Suspect]
     Active Substance: NAPROXEN
     Indication: PRODUCT USED FOR UNKNOWN INDICATION
     Dosage: UNKNOWN
  4. DIAZEPAM (DIAZEPAM) [Concomitant]
     Active Substance: DIAZEPAM
  5. CELEBREX [Suspect]
     Active Substance: CELECOXIB
     Indication: OSTEOARTHRITIS
     Dosage: 200 MG (200 MG, 1 IN 1 D), UNKNOWN
     Dates: start: 20120425, end: 20120530
  6. BENTYL (DICYCLOVERINE HYDROCHLORIDE) [Concomitant]
  7. VALPROATE (VALPROATE SODIUM) [Concomitant]
     Active Substance: VALPROATE SODIUM

REACTIONS (7)
  - Pancreatitis [None]
  - Cholecystectomy [None]
  - Blood cholesterol increased [None]
  - Hypertension [None]
  - Inflammation [None]
  - Irritable bowel syndrome [None]
  - Gastritis erosive [None]
